FAERS Safety Report 14635235 (Version 1)
Quarter: 2018Q1

REPORT INFORMATION
  Report Type: Spontaneous
  Country: US (occurrence: US)
  Receive Date: 20180314
  Receipt Date: 20180314
  Transmission Date: 20180509
  Serious: Yes (Other)
  Sender: FDA-Public Use
  Company Number: US-GLAXOSMITHKLINE-US2018040750

PATIENT

DRUGS (1)
  1. EXCEDRIN [Suspect]
     Active Substance: ACETAMINOPHEN\ASPIRIN\CAFFEINE
     Indication: PRODUCT USED FOR UNKNOWN INDICATION
     Dosage: UNK

REACTIONS (7)
  - Gastric perforation [Unknown]
  - Product quality issue [Unknown]
  - Abdominal pain upper [Unknown]
  - Gastric haemorrhage [Unknown]
  - Drug dependence [Unknown]
  - Gastric ulcer [Unknown]
  - Emergency care examination [Unknown]
